FAERS Safety Report 24417383 (Version 1)
Quarter: 2024Q4

REPORT INFORMATION
  Report Type: Spontaneous
  Country: US (occurrence: None)
  Receive Date: 20241009
  Receipt Date: 20241009
  Transmission Date: 20250114
  Serious: Yes (Hospitalization)
  Sender: Public
  Company Number: None

PATIENT
  Age: 80 Year
  Sex: Female

DRUGS (17)
  1. SKYRIZI [Suspect]
     Active Substance: RISANKIZUMAB-RZAA
     Indication: Psoriasis
     Dosage: OTHER FREQUENCY : EVERY 12 WEEKS;?
     Route: 058
     Dates: start: 20230422
  2. MIRTAZAPINE [Concomitant]
     Active Substance: MIRTAZAPINE
  3. Acitretin 10mg [Concomitant]
  4. QUETIAPINE [Concomitant]
     Active Substance: QUETIAPINE
  5. Vitamin B-12 1000mcg [Concomitant]
  6. ATORVASTATIN [Concomitant]
     Active Substance: ATORVASTATIN
  7. JARDIANCE [Concomitant]
     Active Substance: EMPAGLIFLOZIN
  8. Diltiazem CD 180mg [Concomitant]
  9. PANTOPRAZOLE SODIUM [Concomitant]
     Active Substance: PANTOPRAZOLE SODIUM
  10. Trelergy 200-62.5mcg [Concomitant]
  11. MELATONIN [Concomitant]
     Active Substance: MELATONIN
  12. Irbesartan 75mg [Concomitant]
  13. Senna 8.6mg [Concomitant]
  14. ELIQUIS [Concomitant]
     Active Substance: APIXABAN
  15. DOCUSATE [Concomitant]
     Active Substance: DOCUSATE
  16. Calcium citrate 315MG W/ Vitamin D 250u [Concomitant]
  17. Vitamin D3 1000u [Concomitant]

REACTIONS (2)
  - Gait disturbance [None]
  - Post procedural complication [None]

NARRATIVE: CASE EVENT DATE: 20241007
